FAERS Safety Report 6083252-4 (Version None)
Quarter: 2009Q1

REPORT INFORMATION
  Report Type: 
  Country: None (occurrence: None)
  Receive Date: 20090213
  Receipt Date: 20090213
  Transmission Date: 20090719
  Serious: Yes (Other)
  Sender: FDA-Public Use
  Company Number: None

PATIENT
  Sex: Male
  Weight: 77.1115 kg

DRUGS (1)
  1. ALDARA [Suspect]
     Indication: ACTINIC KERATOSIS
     Dosage: APPLY TO AK DAILY CUTANEOUS
     Route: 003
     Dates: start: 20090125, end: 20090203

REACTIONS (6)
  - CHILLS [None]
  - EYE PAIN [None]
  - FACE OEDEMA [None]
  - HEADACHE [None]
  - MYALGIA [None]
  - NAUSEA [None]
